FAERS Safety Report 9842975 (Version 1)
Quarter: 2013Q4

REPORT INFORMATION
  Report Type: Spontaneous
  Country: US (occurrence: None)
  Receive Date: 20131211
  Receipt Date: 20131211
  Transmission Date: 20140711
  Serious: Yes (Hospitalization)
  Sender: FDA-Public Use
  Company Number: ALL1-2012-04914

PATIENT
  Age: 17 Year
  Sex: Male

DRUGS (3)
  1. LIALDA [Suspect]
     Indication: COLITIS ULCERATIVE
     Route: 048
  2. PREDNISONE (PREDNISONE) [Concomitant]
  3. BALSALAZIDE (BALSALAZIDE) [Concomitant]

REACTIONS (3)
  - Liver function test abnormal [None]
  - Colitis ulcerative [None]
  - Inappropriate schedule of drug administration [None]
